FAERS Safety Report 4820686-7 (Version None)
Quarter: 2005Q4

REPORT INFORMATION
  Report Type: 
  Country: None (occurrence: None)
  Receive Date: 20051014
  Receipt Date: 20050907
  Transmission Date: 20060501
  Serious: No
  Sender: FDA-Public Use
  Company Number: 2005SP002690

PATIENT
  Age: 74 Year
  Sex: Female
  Weight: 83.9154 kg

DRUGS (7)
  1. LUNESTA [Suspect]
     Indication: INSOMNIA
     Dosage: 2 MG; HS; ORAL
     Route: 048
     Dates: start: 20050829
  2. ATORVASTATIN CALCIUM [Concomitant]
  3. METFORMIN [Concomitant]
  4. INDURGAN [Concomitant]
  5. METOPROLOL [Concomitant]
  6. DETROL [Concomitant]
  7. K-DUR 10 [Concomitant]

REACTIONS (3)
  - DRUG INEFFECTIVE [None]
  - DYSGEUSIA [None]
  - INSOMNIA [None]
